FAERS Safety Report 5142896-4 (Version None)
Quarter: 2006Q4

REPORT INFORMATION
  Report Type: 
  Country: None (occurrence: None)
  Receive Date: 20061030
  Receipt Date: 20061017
  Transmission Date: 20070319
  Serious: Yes (Other)
  Sender: FDA-Public Use
  Company Number: 2006126748

PATIENT
  Age: 58 Year
  Sex: Female
  Weight: 58.2 kg

DRUGS (7)
  1. SUTENT [Suspect]
     Indication: RENAL CELL CARCINOMA STAGE UNSPECIFIED
     Dosage: (50 MG, DAILY - CYCLIC), ORAL
     Route: 048
     Dates: start: 20060609
  2. LANSOPRAZOLE [Concomitant]
  3. ORAMORPH SR [Concomitant]
  4. CYCLIZINE (CYCLIZINE) [Concomitant]
  5. ACETAMINOPHEN [Concomitant]
  6. LOPERAMIDE HYDROCHLORIDE [Concomitant]
  7. FORTISIP (CARBOHYDRATES NOS, FATS NOS, MINERALS NOS, PROTEIN, VITAMINS [Concomitant]

REACTIONS (3)
  - BLOOD ALBUMIN DECREASED [None]
  - HYPOTHYROIDISM [None]
  - NEPHROTIC SYNDROME [None]
